FAERS Safety Report 4814217-5 (Version None)
Quarter: 2005Q4

REPORT INFORMATION
  Report Type: 
  Country: None (occurrence: None)
  Receive Date: 20051028
  Receipt Date: 20050718
  Transmission Date: 20060501
  Serious: No
  Sender: FDA-Public Use
  Company Number: US-GLAXOSMITHKLINE-A0567083A

PATIENT
  Age: 45 Year
  Sex: Male
  Weight: 75 kg

DRUGS (4)
  1. ADVAIR DISKUS 100/50 [Suspect]
     Indication: DRUG USE FOR UNKNOWN INDICATION
     Route: 055
  2. IBUPROFEN [Concomitant]
  3. ASCORBIC ACID [Concomitant]
  4. GLUCOSAMINE [Concomitant]

REACTIONS (1)
  - LARYNGITIS [None]
